FAERS Safety Report 23826091 (Version 2)
Quarter: 2024Q2

REPORT INFORMATION
  Report Type: Spontaneous
  Country: US (occurrence: US)
  Receive Date: 20240507
  Receipt Date: 20240606
  Transmission Date: 20240716
  Serious: No
  Sender: FDA-Public Use
  Company Number: US-002147023-NVSC2024US096241

PATIENT

DRUGS (1)
  1. LEQVIO [Suspect]
     Active Substance: INCLISIRAN SODIUM
     Indication: Low density lipoprotein decreased
     Dosage: 284 MG
     Route: 058
     Dates: start: 2023

REACTIONS (1)
  - Low density lipoprotein [Not Recovered/Not Resolved]

NARRATIVE: CASE EVENT DATE: 20230101
